FAERS Safety Report 4262924-8 (Version None)
Quarter: 2004Q1

REPORT INFORMATION
  Report Type: 
  Country: None (occurrence: None)
  Receive Date: 20040102
  Receipt Date: 20040102
  Transmission Date: 20041129
  Serious: Yes (Other)
  Sender: FDA-Public Use
  Company Number: None

PATIENT
  Age: 30 Year
  Sex: Male
  Weight: 70.3075 kg

DRUGS (2)
  1. PROPECIA [Suspect]
     Indication: ALOPECIA
     Dosage: 1 MG DAY
     Dates: start: 19980113, end: 19980213
  2. PROPECIA [Suspect]
     Indication: ALOPECIA
     Dosage: 1 MG DAY
     Dates: start: 19980720, end: 19981020

REACTIONS (1)
  - ERECTILE DYSFUNCTION [None]
